FAERS Safety Report 16443617 (Version 5)
Quarter: 2020Q2

REPORT INFORMATION
  Report Type: Spontaneous
  Country: JP (occurrence: JP)
  Receive Date: 20190618
  Receipt Date: 20200521
  Transmission Date: 20200713
  Serious: Yes (Life-Threatening, Hospitalization, Other)
  Sender: FDA-Public Use
  Company Number: JP-SA-2019SA161815

PATIENT
  Age: 67 Year
  Sex: Male
  Weight: 43.6 kg

DRUGS (14)
  1. MIYA-BM [Concomitant]
     Active Substance: CLOSTRIDIUM BUTYRICUM SPORES STRAIN M-55
     Indication: DIARRHOEA
     Dosage: UNK
     Route: 048
     Dates: start: 20190514, end: 20190527
  2. CINAL [Concomitant]
     Indication: DIARRHOEA
     Dosage: UNK
     Route: 048
     Dates: start: 20190514, end: 20190527
  3. ROSUVASTATIN [ROSUVASTATIN CALCIUM] [Concomitant]
     Active Substance: ROSUVASTATIN CALCIUM
     Indication: INSOMNIA
     Dosage: 1 DF, QD
     Route: 048
  4. FEBURIC [Concomitant]
     Active Substance: FEBUXOSTAT
     Indication: INSOMNIA
     Dosage: 1 DF, QD
     Route: 048
  5. CLOBETASOL PROPIONATE. [Suspect]
     Active Substance: CLOBETASOL PROPIONATE
     Indication: PRODUCT USED FOR UNKNOWN INDICATION
     Route: 061
  6. BROTIZOLAM [Concomitant]
     Active Substance: BROTIZOLAM
     Indication: HYPERLIPIDAEMIA
  7. DUPIXENT [Suspect]
     Active Substance: DUPILUMAB
     Indication: DERMATITIS ATOPIC
     Dosage: 300 MG, QOW
     Route: 058
     Dates: start: 20190306, end: 20190517
  8. ZETIA [Concomitant]
     Active Substance: EZETIMIBE
     Indication: HYPERURICAEMIA
  9. BROTIZOLAM [Concomitant]
     Active Substance: BROTIZOLAM
     Indication: HYPERURICAEMIA
     Dosage: 1 DF, QD
     Route: 048
  10. PROMAC [POLAPREZINC] [Concomitant]
     Active Substance: POLAPREZINC
     Indication: DERMATITIS ATOPIC
     Dosage: UNK
     Route: 048
     Dates: start: 201903, end: 20190527
  11. RUPAFIN [Concomitant]
     Active Substance: RUPATADINE FUMARATE
     Indication: ZINC DEFICIENCY
     Dosage: UNK
     Route: 048
     Dates: start: 201903, end: 20190527
  12. ZETIA [Concomitant]
     Active Substance: EZETIMIBE
     Indication: HYPERLIPIDAEMIA
     Dosage: 1 DF, QD
     Route: 048
  13. BIOTIN [Concomitant]
     Active Substance: BIOTIN
     Indication: DERMATITIS ATOPIC
     Dosage: UNK
     Route: 048
     Dates: start: 201903, end: 20190527
  14. BILANOA [Concomitant]
     Active Substance: BILASTINE
     Indication: ZINC DEFICIENCY
     Dosage: UNK
     Route: 048
     Dates: start: 201903, end: 20190527

REACTIONS (8)
  - Molluscum contagiosum [Recovering/Resolving]
  - Pyrexia [Recovered/Resolved]
  - Anaemia [Recovered/Resolved]
  - Erythema [Recovering/Resolving]
  - Altered state of consciousness [Recovered/Resolved]
  - Peripheral swelling [Recovering/Resolving]
  - Tenderness [Recovering/Resolving]
  - Dermatitis atopic [Unknown]

NARRATIVE: CASE EVENT DATE: 2019
